FAERS Safety Report 8539590-6 (Version None)
Quarter: 2012Q3

REPORT INFORMATION
  Report Type: 
  Country: None (occurrence: None)
  Receive Date: 20120726
  Receipt Date: 20120712
  Transmission Date: 20120928
  Serious: Yes (Other)
  Sender: FDA-Public Use
  Company Number: US-ELI_LILLY_AND_COMPANY-US201204005049

PATIENT
  Sex: Female

DRUGS (10)
  1. ALLOPURINOL [Concomitant]
  2. NEURONTIN                               /USA/ [Concomitant]
  3. ZESTORETIC [Concomitant]
     Indication: HYPERTENSION
  4. LASIX                                   /USA/ [Concomitant]
  5. CYMBALTA [Suspect]
     Indication: NEUROPATHY PERIPHERAL
     Dosage: 30 MG, BID
     Dates: start: 20100101
  6. ZEBETA [Concomitant]
  7. ESTRACE [Concomitant]
     Indication: HORMONE THERAPY
  8. CYMBALTA [Suspect]
     Dosage: 60 MG, UNK
  9. CYMBALTA [Suspect]
     Dosage: 30 MG, BID
     Dates: end: 20120501
  10. SYNTHROID [Concomitant]

REACTIONS (10)
  - SCAR [None]
  - SKIN IRRITATION [None]
  - FEELING ABNORMAL [None]
  - UNEVALUABLE EVENT [None]
  - GINGIVAL RECESSION [None]
  - DERMATITIS BULLOUS [None]
  - SENSITIVITY OF TEETH [None]
  - BUCCAL MUCOSAL ROUGHENING [None]
  - OFF LABEL USE [None]
  - PRURITUS [None]
